FAERS Safety Report 11653136 (Version 1)
Quarter: 2015Q4

REPORT INFORMATION
  Report Type: Spontaneous
  Country: FR (occurrence: FR)
  Receive Date: 20151022
  Receipt Date: 20151022
  Transmission Date: 20160304
  Serious: Yes (Life-Threatening, Hospitalization)
  Sender: FDA-Public Use
  Company Number: FR-JNJFOC-20151013858

PATIENT
  Age: 0 Day
  Sex: Female
  Weight: 1.19 kg

DRUGS (4)
  1. PREZISTA [Suspect]
     Active Substance: DARUNAVIR ETHANOLATE
     Indication: HIV INFECTION
     Route: 064
     Dates: start: 20150307, end: 20150925
  2. NORVIR [Suspect]
     Active Substance: RITONAVIR
     Indication: HIV INFECTION
     Route: 064
     Dates: start: 20150307, end: 20150925
  3. RETROVIR [Suspect]
     Active Substance: ZIDOVUDINE
     Indication: PRODUCT USED FOR UNKNOWN INDICATION
     Route: 065
  4. TRUVADA [Suspect]
     Active Substance: EMTRICITABINE\TENOFOVIR DISOPROXIL FUMARATE
     Indication: HIV INFECTION
     Route: 064
     Dates: start: 20150307, end: 20150925

REACTIONS (8)
  - Polyuria [Unknown]
  - Pneumatosis [Recovered/Resolved]
  - Necrotising enterocolitis neonatal [Recovered/Resolved]
  - Premature baby [Not Recovered/Not Resolved]
  - Foetal exposure during pregnancy [Recovered/Resolved]
  - Weight decreased [Unknown]
  - Rectal haemorrhage [Recovered/Resolved]
  - Hyponatraemia [Recovered/Resolved]

NARRATIVE: CASE EVENT DATE: 20150925
